FAERS Safety Report 5990963-5 (Version None)
Quarter: 2008Q4

REPORT INFORMATION
  Report Type: 
  Country: None (occurrence: None)
  Receive Date: 20081211
  Receipt Date: 20080313
  Transmission Date: 20090506
  Serious: No
  Sender: FDA-Public Use
  Company Number: US-AMGEN-KDL269660

PATIENT
  Sex: Male

DRUGS (2)
  1. ENBREL [Suspect]
     Indication: PSORIATIC ARTHROPATHY
     Dates: start: 20071214
  2. ENBREL [Suspect]
     Indication: PSORIASIS

REACTIONS (3)
  - HEADACHE [None]
  - INFLUENZA LIKE ILLNESS [None]
  - PAIN [None]
